FAERS Safety Report 9729468 (Version 1)
Quarter: 2013Q4

REPORT INFORMATION
  Report Type: Spontaneous
  Country: US (occurrence: US)
  Receive Date: 20131204
  Receipt Date: 20131204
  Transmission Date: 20140711
  Serious: No
  Sender: FDA-Public Use
  Company Number: US-GILEAD-2009-0021561

PATIENT
  Sex: Female

DRUGS (1)
  1. LETAIRIS [Suspect]
     Route: 048
     Dates: start: 20080904

REACTIONS (1)
  - Myalgia [Not Recovered/Not Resolved]
